FAERS Safety Report 24654147 (Version 1)
Quarter: 2024Q4

REPORT INFORMATION
  Report Type: Report from Study
  Country: ZA (occurrence: ZA)
  Receive Date: 20241122
  Receipt Date: 20241122
  Transmission Date: 20250115
  Serious: Yes (Hospitalization, Other)
  Sender: ALEXION PHARMACEUTICALS
  Company Number: ZA-AstraZeneca-CH-00747900A

PATIENT
  Age: 84 Year

DRUGS (5)
  1. BUDESONIDE\FORMOTEROL [Suspect]
     Active Substance: BUDESONIDE\FORMOTEROL
     Indication: Asthma
     Dosage: 60 MICROGRAM PER INHALATION
  2. RIVAROXABAN [Concomitant]
     Active Substance: RIVAROXABAN
     Indication: Coagulopathy
  3. DOXAZOSIN MESYLATE [Concomitant]
     Active Substance: DOXAZOSIN MESYLATE
     Indication: Benign prostatic hyperplasia
  4. ROSUVASTATIN CALCIUM [Concomitant]
     Active Substance: ROSUVASTATIN CALCIUM
     Indication: Blood cholesterol
  5. LOPERAMIDE [Concomitant]
     Active Substance: LOPERAMIDE

REACTIONS (6)
  - Myocardial infarction [Unknown]
  - Dehydration [Unknown]
  - Dysstasia [Unknown]
  - Pulmonary oedema [Unknown]
  - Bladder disorder [Unknown]
  - Weight decreased [Unknown]
